FAERS Safety Report 7937033-4 (Version None)
Quarter: 2011Q4

REPORT INFORMATION
  Report Type: 
  Country: None (occurrence: None)
  Receive Date: 20111123
  Receipt Date: 20111117
  Transmission Date: 20120403
  Serious: Yes (Hospitalization)
  Sender: FDA-Public Use
  Company Number: JP-CEPHALON-2011002413

PATIENT
  Sex: Male
  Weight: 49 kg

DRUGS (6)
  1. ZOLPIDEM TARTRATE [Concomitant]
  2. ITRACONAZOLE [Concomitant]
  3. SULFAMETHOXAZOLE AND TRIMETHOPRIM [Concomitant]
  4. BENDAMUSTINE HCL [Suspect]
     Indication: MANTLE CELL LYMPHOMA
     Route: 042
     Dates: start: 20110221, end: 20110325
  5. DEXAMETHASONE [Concomitant]
     Dates: start: 20110221, end: 20110222
  6. GRANISETRON HCL [Concomitant]
     Dates: start: 20110221, end: 20110221

REACTIONS (6)
  - HEPATIC FUNCTION ABNORMAL [None]
  - ANAEMIA [None]
  - WHITE BLOOD CELL COUNT DECREASED [None]
  - PLATELET COUNT DECREASED [None]
  - GLUCOSE URINE PRESENT [None]
  - NEUTROPHIL COUNT DECREASED [None]
